FAERS Safety Report 8261018-4 (Version None)
Quarter: 2012Q2

REPORT INFORMATION
  Report Type: 
  Country: None (occurrence: None)
  Receive Date: 20120405
  Receipt Date: 20120405
  Transmission Date: 20120825
  Serious: No
  Sender: FDA-Public Use
  Company Number: US-PFIZER INC-2012074137

PATIENT
  Sex: Female
  Weight: 96.1 kg

DRUGS (3)
  1. ASTEPRO [Concomitant]
     Indication: HYPERSENSITIVITY
     Dosage: UNK
     Route: 045
  2. LIPITOR [Suspect]
     Indication: BLOOD CHOLESTEROL INCREASED
     Dosage: 10 MG, 1X/DAY
     Route: 048
     Dates: start: 20111214
  3. QUINAPRIL [Concomitant]
     Indication: HYPERTENSION
     Dosage: 10 MG, 1X/DAY

REACTIONS (5)
  - MYALGIA [None]
  - DIZZINESS [None]
  - BLOOD PRESSURE INCREASED [None]
  - ABNORMAL DREAMS [None]
  - BONE PAIN [None]
